FAERS Safety Report 4388666-6 (Version None)
Quarter: 2004Q2

REPORT INFORMATION
  Report Type: 
  Country: None (occurrence: None)
  Receive Date: 20040624
  Receipt Date: 20040609
  Transmission Date: 20050107
  Serious: No
  Sender: FDA-Public Use
  Company Number: 28596

PATIENT
  Sex: Male

DRUGS (1)
  1. CILOXAN [Suspect]

REACTIONS (3)
  - EYE HAEMORRHAGE [None]
  - IMPLANT SITE HAEMORRHAGE [None]
  - POST PROCEDURAL HAEMORRHAGE [None]
